FAERS Safety Report 8919276 (Version 3)
Quarter: 2013Q1

REPORT INFORMATION
  Report Type: Spontaneous
  Country: JP (occurrence: JP)
  Receive Date: 20121121
  Receipt Date: 20130305
  Transmission Date: 20140127
  Serious: Yes (Hospitalization, Other)
  Sender: FDA-Public Use
  Company Number: JP-JNJFOC-20121107918

PATIENT
  Age: 86 Year
  Sex: Male
  Weight: 42 kg

DRUGS (6)
  1. REMINYL [Suspect]
     Indication: DEMENTIA ALZHEIMER^S TYPE
     Route: 048
     Dates: start: 20120528, end: 20120619
  2. GOSHAJINKIGAN [Concomitant]
     Indication: POLLAKIURIA
     Route: 048
     Dates: start: 20120611
  3. AMLODIPINE [Concomitant]
     Indication: HYPERTENSION
     Route: 048
     Dates: start: 20120618
  4. SODIUM RABEPRAZOLE [Concomitant]
     Indication: GASTROOESOPHAGEAL REFLUX DISEASE
     Route: 048
     Dates: start: 20100907
  5. LENIMEC [Concomitant]
     Indication: HYPERTENSION
     Route: 048
     Dates: start: 20120618
  6. PRAVATIN [Concomitant]
     Indication: HYPERLIPIDAEMIA
     Route: 048
     Dates: start: 20110426

REACTIONS (2)
  - Parkinsonism [Recovered/Resolved]
  - Hypertension [Recovered/Resolved]
